FAERS Safety Report 8463936-0 (Version None)
Quarter: 2012Q2

REPORT INFORMATION
  Report Type: 
  Country: None (occurrence: None)
  Receive Date: 20120625
  Receipt Date: 20120612
  Transmission Date: 20120825
  Serious: Yes (Other)
  Sender: FDA-Public Use
  Company Number: US-ELI_LILLY_AND_COMPANY-US201206004095

PATIENT
  Sex: Female
  Weight: 79.365 kg

DRUGS (8)
  1. BYSTOLIC [Concomitant]
     Indication: HYPERTENSION
     Dosage: 5 MG, BID
  2. CHANTIX [Concomitant]
     Indication: SMOKING CESSATION THERAPY
     Dosage: 0.5 MG, QD
     Dates: end: 20120501
  3. ANTIHYPERTENSIVES [Concomitant]
  4. ANTIDEPRESSANTS [Concomitant]
  5. LOSARTAN POTASSIUM [Concomitant]
     Dosage: 100 MG, QD
     Dates: start: 20120501
  6. CYMBALTA [Suspect]
     Indication: DEPRESSION
     Dosage: UNK
  7. LOSARTAN POTASSIUM [Concomitant]
     Indication: HYPERTENSION
     Dosage: 100 MG, 3/W
  8. XANAX [Concomitant]
     Indication: ANXIETY

REACTIONS (20)
  - HYPERTENSION [None]
  - FLAT AFFECT [None]
  - PRESYNCOPE [None]
  - HALLUCINATION [None]
  - NERVOUSNESS [None]
  - SUICIDAL IDEATION [None]
  - AGGRESSION [None]
  - DELUSION [None]
  - AMNESIA [None]
  - AGITATION [None]
  - RENAL FAILURE CHRONIC [None]
  - PANIC ATTACK [None]
  - PARANOIA [None]
  - DEPRESSION [None]
  - MOBILITY DECREASED [None]
  - ABNORMAL BEHAVIOUR [None]
  - ANGER [None]
  - INSOMNIA [None]
  - FEAR [None]
  - FEELING ABNORMAL [None]
